FAERS Safety Report 5228631-X (Version None)
Quarter: 2007Q1

REPORT INFORMATION
  Report Type: 
  Country: None (occurrence: None)
  Receive Date: 20070131
  Receipt Date: 20070117
  Transmission Date: 20070707
  Serious: Yes (Other)
  Sender: FDA-Public Use
  Company Number: SP-2006-003345

PATIENT
  Age: 61 Year
  Sex: Female

DRUGS (3)
  1. ALTEIS [Suspect]
     Indication: HYPERTENSION
     Dosage: 20 MG QD PO
     Route: 048
     Dates: start: 20061020, end: 20061027
  2. FLUDEX [Suspect]
     Indication: HYPERTENSION
     Dosage: 1.5 MG QD PO
     Route: 048
     Dates: start: 20060717, end: 20061027
  3. PRAVASTATIN [Concomitant]

REACTIONS (3)
  - DRY MOUTH [None]
  - MALAISE [None]
  - TACHYARRHYTHMIA [None]
